FAERS Safety Report 8984318 (Version 2)
Quarter: 2013Q1

REPORT INFORMATION
  Report Type: Spontaneous
  Country: ES (occurrence: None)
  Receive Date: 20121212
  Receipt Date: 20130102
  Transmission Date: 20140127
  Serious: Yes (Hospitalization, Other)
  Sender: FDA-Public Use
  Company Number: VAL_01170_2012

PATIENT
  Age: 33 Year
  Sex: Female

DRUGS (2)
  1. METHYLERGOMETRINE [Suspect]
     Indication: POSTPARTUM HAEMORRHAGE
     Dosage: (DF)
  2. MISOPROSTOL [Concomitant]

REACTIONS (8)
  - Disseminated intravascular coagulation [None]
  - Metrorrhagia [None]
  - Thrombocytopenia [None]
  - Coagulopathy [None]
  - Haemoglobin decreased [None]
  - Dilatation ventricular [None]
  - Systolic dysfunction [None]
  - Haematuria [None]
